FAERS Safety Report 6225343-0 (Version None)
Quarter: 2009Q2

REPORT INFORMATION
  Report Type: 
  Country: None (occurrence: None)
  Receive Date: 20090612
  Receipt Date: 20090416
  Transmission Date: 20091009
  Serious: No
  Sender: FDA-Public Use
  Company Number: US-ABBOTT-09P-163-0568726-00

PATIENT
  Sex: Female
  Weight: 59.02 kg

DRUGS (4)
  1. HUMIRA [Suspect]
     Indication: RHEUMATOID ARTHRITIS
     Route: 058
     Dates: start: 20090101
  2. METHOTREXATE [Concomitant]
     Indication: RHEUMATOID ARTHRITIS
     Route: 048
  3. TOPAMAX [Concomitant]
     Indication: CONVULSION
     Route: 048
  4. AMITRIPTLINE HYDROCHLORIDE TAB [Concomitant]
     Indication: HEADACHE
     Route: 048

REACTIONS (2)
  - PAIN [None]
  - SWELLING [None]
